FAERS Safety Report 4722320-3 (Version None)
Quarter: 2005Q3

REPORT INFORMATION
  Report Type: 
  Country: None (occurrence: None)
  Receive Date: 20050722
  Receipt Date: 20050218
  Transmission Date: 20060218
  Serious: No
  Sender: FDA-Public Use
  Company Number: US-GLAXOSMITHKLINE-A0546293A

PATIENT
  Age: 53 Year
  Sex: Female

DRUGS (5)
  1. AVANDIA [Suspect]
     Dosage: 2MG PER DAY
     Route: 048
     Dates: start: 20040901
  2. GLUCOPHAGE [Concomitant]
  3. DIOVAN [Concomitant]
  4. VIOXX [Concomitant]
  5. LEXAPRO [Concomitant]

REACTIONS (1)
  - ABDOMINAL PAIN [None]
